FAERS Safety Report 4724655-7 (Version None)
Quarter: 2005Q3

REPORT INFORMATION
  Report Type: 
  Country: None (occurrence: None)
  Receive Date: 20050719
  Receipt Date: 20050719
  Transmission Date: 20060218
  Serious: Yes (Hospitalization)
  Sender: FDA-Public Use
  Company Number: None

PATIENT
  Sex: Male
  Weight: 79.2 kg

DRUGS (6)
  1. DAUNOMYCIN [Suspect]
     Indication: ACUTE LYMPHOCYTIC LEUKAEMIA
     Dosage: SEE IMAGE
     Dates: start: 20050325
  2. DAUNOMYCIN [Suspect]
     Indication: ACUTE LYMPHOCYTIC LEUKAEMIA
     Dosage: SEE IMAGE
     Dates: start: 20050415
  3. VINCRISTINE SULFATE [Suspect]
     Dosage: SEE IMAGE
     Dates: start: 20050415
  4. PREDNISONE [Suspect]
     Dosage: SEE IMAGE
     Dates: start: 20050419
  5. L-ASPAPAGINASE [Suspect]
     Dosage: SEE IMAGE
     Dates: start: 20050419
  6. METHOTREXATE [Suspect]
     Dosage: SEE IMAGE

REACTIONS (6)
  - ATELECTASIS [None]
  - BACTERIAL INFECTION [None]
  - BLOOD BILIRUBIN INCREASED [None]
  - PLEURAL EFFUSION [None]
  - SEPSIS [None]
  - STREPTOCOCCAL INFECTION [None]
